FAERS Safety Report 24182803 (Version 1)
Quarter: 2024Q3

REPORT INFORMATION
  Report Type: Spontaneous
  Country: DE (occurrence: DE)
  Receive Date: 20240807
  Receipt Date: 20240807
  Transmission Date: 20241016
  Serious: Yes (Other)
  Sender: ASTELLAS
  Company Number: DE-ASTELLAS-2024US021956

PATIENT
  Age: 77 Year
  Sex: Male
  Weight: 53 kg

DRUGS (2)
  1. XTANDI [Suspect]
     Active Substance: ENZALUTAMIDE
     Indication: Prostate cancer
     Dosage: 160 MG (4X40MG), UNKNOWN FREQ.
     Route: 065
  2. XTANDI [Suspect]
     Active Substance: ENZALUTAMIDE
     Dosage: 120 MG (3X40MG), UNKNOWN FREQ.
     Route: 065

REACTIONS (4)
  - Necrosis [Unknown]
  - Accident [Unknown]
  - Traumatic fracture [Unknown]
  - Blood pressure increased [Unknown]
